FAERS Safety Report 16617143 (Version 1)
Quarter: 2019Q3

REPORT INFORMATION
  Report Type: Spontaneous
  Country: NL (occurrence: NL)
  Receive Date: 20190723
  Receipt Date: 20190723
  Transmission Date: 20191004
  Serious: Yes (Other)
  Sender: FDA-Public Use
  Company Number: NL-MYLANLABS-2019M1067700

PATIENT
  Age: 5 Year
  Sex: Male

DRUGS (2)
  1. TEMOZOLOMIDE. [Suspect]
     Active Substance: TEMOZOLOMIDE
     Indication: NEUROBLASTOMA
     Dosage: UNK
     Route: 065
  2. TOPOTECAN HYDROCHLORIDE. [Suspect]
     Active Substance: TOPOTECAN HYDROCHLORIDE
     Indication: NEUROBLASTOMA
     Dosage: 0.75 MG/M2, QD
     Route: 042
     Dates: start: 20181019, end: 20181212

REACTIONS (3)
  - Product use in unapproved indication [Unknown]
  - Malignant neoplasm progression [Not Recovered/Not Resolved]
  - Neuroblastoma [Not Recovered/Not Resolved]

NARRATIVE: CASE EVENT DATE: 20181212
